FAERS Safety Report 8219550-5 (Version None)
Quarter: 2012Q1

REPORT INFORMATION
  Report Type: 
  Country: None (occurrence: None)
  Receive Date: 20120319
  Receipt Date: 20120315
  Transmission Date: 20120608
  Serious: Yes (Death, Other)
  Sender: FDA-Public Use
  Company Number: PHHY2012US022894

PATIENT
  Age: 66 Year
  Sex: Female

DRUGS (4)
  1. TACROLIMUS [Suspect]
  2. MELPHALAN HYDROCHLORIDE [Concomitant]
     Dosage: 100 MG, UNK
  3. FLUDARABINE PHOSPHATE [Concomitant]
     Dosage: 24 MG/M2, UNK
  4. ALEMTUZUMAB [Concomitant]
     Dosage: 20 MG, UNK

REACTIONS (8)
  - HAEMORRHAGIC STROKE [None]
  - BRONCHOPULMONARY ASPERGILLOSIS [None]
  - SKIN LESION [None]
  - GRAFT VERSUS HOST DISEASE [None]
  - PERIPHERAL T-CELL LYMPHOMA UNSPECIFIED [None]
  - TREMOR [None]
  - CONFUSIONAL STATE [None]
  - AMNESIA [None]
